FAERS Safety Report 7041235-1 (Version None)
Quarter: 2010Q4

REPORT INFORMATION
  Report Type: 
  Country: None (occurrence: None)
  Receive Date: 20101007
  Receipt Date: 20100927
  Transmission Date: 20110411
  Serious: Yes (Hospitalization, Other)
  Sender: FDA-Public Use
  Company Number: 1000016602

PATIENT
  Age: 47 Year
  Sex: Female

DRUGS (5)
  1. ESCITALOPRAM [Suspect]
     Dosage: 10 MG (10 MG,1 IN 1 D),ORAL
     Route: 048
     Dates: end: 20100823
  2. LEXOMIL (BROMAZEPAM) (TABLETS) [Suspect]
     Dosage: 6 DF (6 DOSAGE FORMS,1 IN 1 D),ORAL
     Route: 048
     Dates: start: 20010101, end: 20100823
  3. DIALGIREX (DEXTROPROPOXYPHENE, PARCETAMOL) (CAPSULES) [Suspect]
     Dosage: 6 TO 10 DF PER DAY,ORAL
     Route: 048
     Dates: start: 20010101, end: 20100823
  4. TERCIAN (CYAMEMAZINE) (TABLETS) (CYAMEMAZINE) [Concomitant]
  5. VALIUM (DIAZEPAM) (TABLETS) (DIAZEPAM) [Concomitant]

REACTIONS (4)
  - AMMONIA INCREASED [None]
  - BLOOD ALKALINE PHOSPHATASE INCREASED [None]
  - GAMMA-GLUTAMYLTRANSFERASE INCREASED [None]
  - TRANSAMINASES INCREASED [None]
